FAERS Safety Report 23159377 (Version 2)
Quarter: 2023Q4

REPORT INFORMATION
  Report Type: Other
  Country: JP (occurrence: JP)
  Receive Date: 20231108
  Receipt Date: 20231110
  Transmission Date: 20240109
  Serious: Yes (Hospitalization)
  Sender: FDA-Public Use
  Company Number: JP-CHUGAI-2023039250

PATIENT
  Age: 70 Year
  Sex: Male
  Weight: 63 kg

DRUGS (3)
  1. RITUXAN [Suspect]
     Active Substance: RITUXIMAB
     Indication: Diffuse large B-cell lymphoma
     Dosage: INFUSION 100 MG
     Route: 041
     Dates: start: 20220524, end: 20221003
  2. POLIVY [Suspect]
     Active Substance: POLATUZUMAB VEDOTIN-PIIQ
     Indication: Diffuse large B-cell lymphoma
     Dosage: 120 MILLIGRAM, ONCE/MONTH
     Route: 041
     Dates: start: 20220524, end: 20221003
  3. BENDAMUSTINE HYDROCHLORIDE [Suspect]
     Active Substance: BENDAMUSTINE HYDROCHLORIDE
     Indication: Diffuse large B-cell lymphoma
     Dosage: 150 MILLIGRAM, ONCE/4WEEKS
     Route: 041
     Dates: start: 20220524, end: 20221003

REACTIONS (1)
  - Cytomegalovirus enterocolitis [Recovered/Resolved]

NARRATIVE: CASE EVENT DATE: 20221017
